FAERS Safety Report 12351597 (Version 1)
Quarter: 2016Q2

REPORT INFORMATION
  Report Type: Spontaneous
  Country: US (occurrence: US)
  Receive Date: 20160510
  Receipt Date: 20160510
  Transmission Date: 20160815
  Serious: No
  Sender: FDA-Public Use
  Company Number: US-MYLANLABS-2016M1012444

PATIENT
  Age: 20 Year
  Sex: Female

DRUGS (1)
  1. XULANE [Suspect]
     Active Substance: ETHINYL ESTRADIOL\NORELGESTROMIN
     Indication: CONTRACEPTION
     Dosage: 150/35 ?G, QWK
     Route: 062
     Dates: start: 20160317, end: 201603

REACTIONS (3)
  - Application site pruritus [None]
  - Application site rash [Not Recovered/Not Resolved]
  - Application site erythema [None]

NARRATIVE: CASE EVENT DATE: 20160318
